FAERS Safety Report 20116441 (Version 1)
Quarter: 2021Q4

REPORT INFORMATION
  Report Type: Spontaneous
  Country: PL (occurrence: PL)
  Receive Date: 20211126
  Receipt Date: 20211126
  Transmission Date: 20220303
  Serious: Yes (Other)
  Sender: FDA-Public Use
  Company Number: PL-AMGEN-POLSP2021182655

PATIENT
  Age: 61 Year
  Sex: Female

DRUGS (4)
  1. VECTIBIX [Suspect]
     Active Substance: PANITUMUMAB
     Indication: Rectal cancer
     Dosage: UNK
     Route: 065
     Dates: start: 20200221
  2. LEUCOVORIN [Concomitant]
     Active Substance: LEUCOVORIN
     Indication: Rectal cancer
     Dosage: UNK
     Dates: start: 20200221
  3. OXALIPLATIN [Concomitant]
     Active Substance: OXALIPLATIN
     Indication: Rectal cancer
     Dosage: UNK
     Dates: start: 20200221
  4. FLUOROURACIL [Concomitant]
     Active Substance: FLUOROURACIL
     Indication: Rectal cancer
     Dosage: UNK
     Dates: start: 20200221

REACTIONS (3)
  - Rectal cancer metastatic [Unknown]
  - Therapy partial responder [Unknown]
  - Skin toxicity [Unknown]

NARRATIVE: CASE EVENT DATE: 20210101
